FAERS Safety Report 25226675 (Version 2)
Quarter: 2025Q2

REPORT INFORMATION
  Report Type: Spontaneous
  Country: US (occurrence: US)
  Receive Date: 20250422
  Receipt Date: 20250506
  Transmission Date: 20250717
  Serious: Yes (Other)
  Sender: AMGEN
  Company Number: US-AMGEN-USASP2025076317

PATIENT
  Sex: Female

DRUGS (2)
  1. REPATHA [Suspect]
     Active Substance: EVOLOCUMAB
     Indication: Hyperlipidaemia
     Route: 065
  2. REPATHA [Suspect]
     Active Substance: EVOLOCUMAB
     Indication: Coronary artery disease

REACTIONS (5)
  - Joint surgery [Recovered/Resolved]
  - Gait disturbance [Unknown]
  - Injection site bruising [Not Recovered/Not Resolved]
  - Device difficult to use [Unknown]
  - Drug dose omission by device [Unknown]
